FAERS Safety Report 9199827 (Version 4)
Quarter: 2013Q3

REPORT INFORMATION
  Report Type: Report from Study
  Country: FR (occurrence: FR)
  Receive Date: 20130329
  Receipt Date: 20130716
  Transmission Date: 20140515
  Serious: Yes (Hospitalization)
  Sender: FDA-Public Use
  Company Number: FR-009507513-1303FRA012386

PATIENT
  Age: 67 Year
  Sex: Female
  Weight: 65 kg

DRUGS (15)
  1. VIRAFERONPEG [Suspect]
     Indication: HEPATITIS C
     Dosage: 100 MICROGRAM, QW
     Route: 058
     Dates: start: 20130207
  2. REBETOL [Suspect]
     Indication: HEPATITIS C
     Dosage: 600 MG, QD
     Route: 048
     Dates: start: 20130207
  3. VICTRELIS [Suspect]
     Dosage: 800 MG, TID
     Route: 048
     Dates: start: 20130228
  4. APROVEL [Concomitant]
     Indication: HYPERTENSION
     Dosage: 150 MG, UNK
     Route: 048
  5. URSOLVAN [Concomitant]
     Dosage: 3 DF, QD
  6. PIASCLEDINE [Concomitant]
     Dosage: 1 DF, QD
  7. NOVOMIX [Concomitant]
     Indication: DIABETES MELLITUS
     Dosage: 9 IU, QD
  8. TRANXENE [Concomitant]
     Indication: DEPRESSION
     Dosage: 5 MG, QD
     Dates: start: 1997
  9. VENTOLINE (ALBUTEROL SULFATE) [Concomitant]
     Indication: ASTHMA
     Dosage: 2 DF, PRN
  10. SINGULAIR [Concomitant]
     Indication: DYSPNOEA
     Dosage: 10 MG, QD
     Dates: start: 20091020
  11. BETASERC [Concomitant]
     Indication: VERTIGO
     Dosage: 24 MG, TID
     Dates: start: 20090414
  12. LEVOTHYROX [Concomitant]
     Indication: HYPOTHYROIDISM
     Dosage: 75 MICROGRAM, QD
  13. LASILIX [Concomitant]
     Indication: HYPERTENSION
     Dosage: 40 MG, QD
     Dates: start: 20081127
  14. TENORMINE [Concomitant]
     Indication: TACHYCARDIA
     Dosage: 100 MG, QD
     Route: 048
  15. INDACATEROL [Concomitant]
     Dosage: 1 DF, QD

REACTIONS (1)
  - Anaemia [Recovered/Resolved]
